FAERS Safety Report 8358837-2 (Version None)
Quarter: 2012Q2

REPORT INFORMATION
  Report Type: 
  Country: None (occurrence: None)
  Receive Date: 20120515
  Receipt Date: 20120507
  Transmission Date: 20120825
  Serious: Yes (Hospitalization, Other)
  Sender: FDA-Public Use
  Company Number: US-AMGEN-USASP2012028727

PATIENT
  Age: 56 Year
  Sex: Male

DRUGS (1)
  1. ENBREL [Suspect]
     Indication: RHEUMATOID ARTHRITIS
     Dosage: 50 MG, QWK
     Dates: start: 20110510

REACTIONS (9)
  - CATHETERISATION CARDIAC [None]
  - GROIN PAIN [None]
  - ELECTROCARDIOGRAM ABNORMAL [None]
  - CHEST DISCOMFORT [None]
  - LIMB DISCOMFORT [None]
  - ASTHENIA [None]
  - VASCULAR OCCLUSION [None]
  - CHEST PAIN [None]
  - DYSPNOEA [None]
